FAERS Safety Report 11125364 (Version 4)
Quarter: 2015Q3

REPORT INFORMATION
  Report Type: Report from Study
  Country: JP (occurrence: JP)
  Receive Date: 20150520
  Receipt Date: 20150701
  Transmission Date: 20151125
  Serious: Yes (Hospitalization)
  Sender: FDA-Public Use
  Company Number: JP-EISAI MEDICAL RESEARCH-EC-2015-006956

PATIENT
  Age: 86 Year
  Sex: Female

DRUGS (10)
  1. UNISIA [Concomitant]
     Active Substance: AMLODIPINE BESYLATE\CANDESARTAN CILEXETIL
     Dates: start: 20140604
  2. LUNESTA [Concomitant]
     Active Substance: ESZOPICLONE
  3. ARICEPT [Suspect]
     Active Substance: DONEPEZIL HYDROCHLORIDE
     Route: 048
     Dates: start: 20140515
  4. SERMION [Concomitant]
     Active Substance: NICERGOLINE
     Dates: start: 20140604
  5. DIOVAN [Concomitant]
     Active Substance: VALSARTAN
  6. METHYLCOBAL [Concomitant]
     Active Substance: METHYLCOBALAMIN
  7. NORVASC [Concomitant]
     Active Substance: AMLODIPINE BESYLATE
  8. ARICEPT [Suspect]
     Active Substance: DONEPEZIL HYDROCHLORIDE
     Indication: DEMENTIA ALZHEIMER^S TYPE
     Route: 048
     Dates: start: 20140501, end: 20140514
  9. VESICARE [Concomitant]
     Active Substance: SOLIFENACIN SUCCINATE
     Route: 048
     Dates: start: 20140813
  10. PROTECADIN [Concomitant]
     Active Substance: LAFUTIDINE

REACTIONS (1)
  - Sinus node dysfunction [Recovered/Resolved]

NARRATIVE: CASE EVENT DATE: 20150430
